FAERS Safety Report 16202840 (Version 1)
Quarter: 2019Q2

REPORT INFORMATION
  Report Type: Spontaneous
  Country: US (occurrence: US)
  Receive Date: 20190416
  Receipt Date: 20190416
  Transmission Date: 20190711
  Serious: No
  Sender: FDA-Public Use
  Company Number: US-PFIZER INC-2019155657

PATIENT
  Age: 59 Year
  Sex: Female
  Weight: 63.5 kg

DRUGS (9)
  1. ESTRING [Suspect]
     Active Substance: ESTRADIOL
     Indication: HORMONE REPLACEMENT THERAPY
  2. TESTOSTERONE. [Concomitant]
     Active Substance: TESTOSTERONE
     Indication: HORMONE REPLACEMENT THERAPY
     Dosage: 0.25 MG, UNK
  3. T3 [Concomitant]
     Active Substance: LIOTHYRONINE SODIUM
     Indication: HYPOTHYROIDISM
     Dosage: 5 MG, 1X/DAY
  4. ESTAZOLAM. [Concomitant]
     Active Substance: ESTAZOLAM
     Dosage: ONE AND A HALF TABLET AT NIGHT
  5. CLIMARA [Concomitant]
     Active Substance: ESTRADIOL
     Dosage: 0.1 MG, 2X/WEEK
  6. BUPROPION. [Concomitant]
     Active Substance: BUPROPION
     Dosage: 150 MG, 1X/DAY
  7. TIROSINT [Concomitant]
     Active Substance: LEVOTHYROXINE SODIUM
     Dosage: 88 UG, UNK
  8. ESTRING [Suspect]
     Active Substance: ESTRADIOL
     Indication: HYSTERECTOMY
     Dosage: UNK
  9. SPIRONOLACTONE. [Concomitant]
     Active Substance: SPIRONOLACTONE
     Dosage: 25 MG, 1X/DAY

REACTIONS (2)
  - Drug ineffective [Unknown]
  - Bladder disorder [Unknown]
